FAERS Safety Report 8336871-6 (Version None)
Quarter: 2012Q2

REPORT INFORMATION
  Report Type: 
  Country: None (occurrence: None)
  Receive Date: 20120504
  Receipt Date: 20110505
  Transmission Date: 20120825
  Serious: No
  Sender: FDA-Public Use
  Company Number: US-TEVA-2011002229

PATIENT
  Sex: Female
  Weight: 46.308 kg

DRUGS (6)
  1. PAXIL [Concomitant]
  2. ACTONEL [Concomitant]
  3. DILTIAZEM [Concomitant]
  4. NUVIGIL [Suspect]
     Indication: SOMNOLENCE
     Dosage: 225 MILLIGRAM;
     Route: 048
     Dates: start: 20110401
  5. PREMARIN [Concomitant]
  6. PHENOBARBITAL TAB [Concomitant]
     Dates: start: 20010101

REACTIONS (2)
  - ABNORMAL BEHAVIOUR [None]
  - DYSARTHRIA [None]
